FAERS Safety Report 6245078-8 (Version None)
Quarter: 2009Q2

REPORT INFORMATION
  Report Type: 
  Country: None (occurrence: None)
  Receive Date: 20090625
  Receipt Date: 20090616
  Transmission Date: 20091009
  Serious: Yes (Life-Threatening)
  Sender: FDA-Public Use
  Company Number: GB-JNJFOC-20090605432

PATIENT
  Age: 75 Year
  Sex: Male

DRUGS (7)
  1. REMICADE [Suspect]
     Indication: PSORIASIS
     Route: 042
  2. DIURETICS [Concomitant]
  3. CALCIUM [Concomitant]
  4. VITAMIN D [Concomitant]
  5. LEVOTHYROXINE SODIUM [Concomitant]
  6. BETAMETHASONE [Concomitant]
  7. FUROSEMIDE INTENSOL [Concomitant]
     Route: 050

REACTIONS (2)
  - CARDIAC FAILURE [None]
  - LEFT VENTRICULAR DYSFUNCTION [None]
